FAERS Safety Report 24444986 (Version 2)
Quarter: 2024Q4

REPORT INFORMATION
  Report Type: Report from Study
  Country: US (occurrence: US)
  Receive Date: 20241016
  Receipt Date: 20241017
  Transmission Date: 20250115
  Serious: No
  Sender: ROCHE
  Company Number: US-ROCHE-2890862

PATIENT
  Age: 68 Year
  Sex: Female

DRUGS (9)
  1. RITUXAN [Suspect]
     Active Substance: RITUXIMAB
     Indication: Arteritis
     Dosage: ON DAY 1 AND DAY 15 EVERY 6 MONTHS
     Route: 042
     Dates: start: 20211025
  2. FOLIC ACID [Concomitant]
     Active Substance: FOLIC ACID
  3. LOKELMA [Concomitant]
     Active Substance: SODIUM ZIRCONIUM CYCLOSILICATE
  4. METOPROLOL [Concomitant]
     Active Substance: METOPROLOL
  5. TAVNEOS [Concomitant]
     Active Substance: AVACOPAN
  6. ASPIRIN [Concomitant]
     Active Substance: ASPIRIN
  7. ROSUVASTATIN [Concomitant]
     Active Substance: ROSUVASTATIN
  8. PROLIA [Concomitant]
     Active Substance: DENOSUMAB
  9. ATOVAQUONE [Concomitant]
     Active Substance: ATOVAQUONE

REACTIONS (3)
  - Off label use [Unknown]
  - Arthralgia [Unknown]
  - Paraesthesia [Unknown]
